FAERS Safety Report 13920613 (Version 1)
Quarter: 2017Q3

REPORT INFORMATION
  Report Type: Spontaneous
  Country: US (occurrence: US)
  Receive Date: 20170829
  Receipt Date: 20170829
  Transmission Date: 20171127
  Serious: Yes (Disabling)
  Sender: FDA-Public Use
  Company Number: None

PATIENT
  Age: 51 Year
  Sex: Female
  Weight: 87.75 kg

DRUGS (6)
  1. DOXYCYCLINE MONOHYDRATE [Suspect]
     Active Substance: DOXYCYCLINE
     Indication: RASH
     Dosage: ?          QUANTITY:1 TABLET(S);?
     Route: 048
  2. JAMAICAN DOGWOOD [Concomitant]
  3. VITAMIN D [Concomitant]
     Active Substance: CHOLECALCIFEROL
  4. CALCIUM [Concomitant]
     Active Substance: CALCIUM
  5. POTASSIUM [Concomitant]
     Active Substance: POTASSIUM
  6. MAGNESIUM [Concomitant]
     Active Substance: MAGNESIUM

REACTIONS (18)
  - Pain [None]
  - Pharyngeal oedema [None]
  - Muscle spasms [None]
  - Dysstasia [None]
  - Swollen tongue [None]
  - Hypoaesthesia [None]
  - Headache [None]
  - Therapy cessation [None]
  - Swelling face [None]
  - Nausea [None]
  - Lip swelling [None]
  - Quality of life decreased [None]
  - Drug interaction [None]
  - Back pain [None]
  - Vision blurred [None]
  - Lethargy [None]
  - Somnolence [None]
  - Fall [None]

NARRATIVE: CASE EVENT DATE: 20160706
